FAERS Safety Report 5404533-0 (Version None)
Quarter: 2007Q3

REPORT INFORMATION
  Report Type: 
  Country: None (occurrence: None)
  Receive Date: 20070802
  Receipt Date: 20070726
  Transmission Date: 20080115
  Serious: Yes (Other)
  Sender: FDA-Public Use
  Company Number: ES-ROXANE LABORATORIES, INC-2007-BP-18153RO

PATIENT
  Age: 56 Year
  Sex: Male

DRUGS (5)
  1. DICLOFENAC SODIUM [Suspect]
     Indication: ALLERGY TEST
     Route: 048
  2. ASPIRIN [Suspect]
     Route: 048
  3. DIPYRONE TAB [Suspect]
     Route: 048
  4. KETOPROFEN [Suspect]
     Indication: ALLERGY TEST
     Route: 048
  5. NSAIDS [Suspect]
     Route: 048

REACTIONS (1)
  - CONJUNCTIVAL OEDEMA [None]
